FAERS Safety Report 19896301 (Version 1)
Quarter: 2021Q3

REPORT INFORMATION
  Report Type: Spontaneous
  Country: DE (occurrence: DE)
  Receive Date: 20210929
  Receipt Date: 20210929
  Transmission Date: 20211014
  Serious: Yes (Other)
  Sender: FDA-Public Use
  Company Number: DE-ASTRAZENECA-2021A746634

PATIENT
  Age: 84 Year
  Sex: Male

DRUGS (7)
  1. METFORMIN [Concomitant]
     Active Substance: METFORMIN HYDROCHLORIDE
     Route: 065
  2. METOPROLOL. [Concomitant]
     Active Substance: METOPROLOL
     Route: 065
  3. DAPAGLIFLOCIN [Concomitant]
     Route: 065
  4. DAPAGLIFLOZIN. [Suspect]
     Active Substance: DAPAGLIFLOZIN
     Indication: CARDIOMYOPATHY
     Route: 048
  5. SACUBITRIL [Concomitant]
     Active Substance: SACUBITRIL
     Route: 065
  6. TOREM [Concomitant]
     Active Substance: TORSEMIDE
     Route: 065
  7. APIXABAN [Concomitant]
     Active Substance: APIXABAN
     Route: 065

REACTIONS (7)
  - Pleural effusion [Unknown]
  - Dyspnoea [Unknown]
  - Type 2 diabetes mellitus [Unknown]
  - Cardiac failure [Unknown]
  - Left ventricular dysfunction [Unknown]
  - Mitral valve incompetence [Unknown]
  - Tricuspid valve incompetence [Unknown]
